FAERS Safety Report 18820897 (Version 1)
Quarter: 2021Q1

REPORT INFORMATION
  Report Type: Spontaneous
  Country: FR (occurrence: FR)
  Receive Date: 20210202
  Receipt Date: 20210202
  Transmission Date: 20210419
  Serious: Yes (Disabling)
  Sender: FDA-Public Use
  Company Number: FR-ASTRAZENECA-2021A021578

PATIENT
  Age: 551 Month
  Sex: Male

DRUGS (3)
  1. SYMBICORT [Suspect]
     Active Substance: BUDESONIDE\FORMOTEROL FUMARATE DIHYDRATE
     Route: 055
  2. FASENRA [Suspect]
     Active Substance: BENRALIZUMAB
     Route: 058
     Dates: start: 201906
  3. CORTISONE [Concomitant]
     Active Substance: CORTISONE

REACTIONS (2)
  - Gait disturbance [Unknown]
  - Nervous system disorder [Unknown]

NARRATIVE: CASE EVENT DATE: 201909
